FAERS Safety Report 4516954-9 (Version None)
Quarter: 2004Q4

REPORT INFORMATION
  Report Type: 
  Country: None (occurrence: None)
  Receive Date: 20041202
  Receipt Date: 20041123
  Transmission Date: 20050328
  Serious: Yes (Hospitalization)
  Sender: FDA-Public Use
  Company Number: FR-BRISTOL-MYERS SQUIBB COMPANY-12773628

PATIENT
  Age: 64 Year
  Sex: Male

DRUGS (11)
  1. VASTEN [Suspect]
     Indication: DYSLIPIDAEMIA
     Route: 048
     Dates: start: 20040913, end: 20040920
  2. BACTRIM [Suspect]
     Dosage: DOSAGE FORM = UNIT
     Dates: start: 20040916, end: 20040921
  3. RIMACTANE [Suspect]
     Dosage: DOSAGE FORM = UNIT CAPSULES
     Route: 048
     Dates: start: 20040904, end: 20040921
  4. CALCIPARINE [Suspect]
     Route: 058
     Dates: start: 20040825, end: 20040920
  5. VANCOMYCIN [Suspect]
     Route: 042
     Dates: start: 20040825, end: 20040916
  6. LASILIX [Concomitant]
  7. CORDARONE [Concomitant]
  8. RIVOTRIL [Concomitant]
  9. COLTRAMYL [Concomitant]
  10. RENITEC [Concomitant]
  11. STILNOX [Concomitant]

REACTIONS (3)
  - ALANINE AMINOTRANSFERASE INCREASED [None]
  - RASH MORBILLIFORM [None]
  - RENAL IMPAIRMENT [None]
